FAERS Safety Report 14524219 (Version 4)
Quarter: 2018Q1

REPORT INFORMATION
  Report Type: Report from Study
  Country: JP (occurrence: JP)
  Receive Date: 20180213
  Receipt Date: 20180324
  Transmission Date: 20180509
  Serious: Yes (Hospitalization)
  Sender: FDA-Public Use
  Company Number: JP-CONCORDIA PHARMACEUTICALS INC.-GSH201802-000566

PATIENT
  Age: 46 Year
  Sex: Female

DRUGS (19)
  1. PREDNISOLONE. [Concomitant]
     Active Substance: PREDNISOLONE
     Dates: start: 20161114
  2. LIPITOR [Concomitant]
     Active Substance: ATORVASTATIN CALCIUM
     Dates: start: 20170621
  3. VALIXA [Concomitant]
     Active Substance: VALGANCICLOVIR
     Dates: start: 20170119, end: 20170228
  4. PROGRAF [Concomitant]
     Active Substance: TACROLIMUS\TACROLIMUS ANHYDROUS
     Dates: start: 20161220, end: 20170620
  5. VENOGLOBULIN [Concomitant]
     Active Substance: HUMAN IMMUNOGLOBULIN G
     Dates: start: 20170119, end: 20171222
  6. CELLCEPT [Concomitant]
     Active Substance: MYCOPHENOLATE MOFETIL\MYCOPHENOLATE MOFETIL HYDROCHLORIDE
     Dates: start: 20161125
  7. NEORAL [Concomitant]
     Active Substance: CYCLOSPORINE
     Dates: start: 20170621, end: 20171109
  8. DIART [Concomitant]
     Active Substance: AZOSEMIDE
     Dates: end: 20170910
  9. PARIET [Concomitant]
     Active Substance: RABEPRAZOLE SODIUM
     Dates: end: 20170817
  10. ACTONEL [Concomitant]
     Active Substance: RISEDRONATE SODIUM
  11. PLAQUENIL [Suspect]
     Active Substance: HYDROXYCHLOROQUINE SULFATE
     Indication: SYSTEMIC LUPUS ERYTHEMATOSUS
     Route: 048
     Dates: start: 20170106, end: 20170909
  12. TAKECAB [Concomitant]
     Active Substance: VONOPRAZAN FUMURATE
     Dates: start: 20170818
  13. MICARDIS [Concomitant]
     Active Substance: TELMISARTAN
     Dates: end: 20170622
  14. BAKTAR [Concomitant]
     Active Substance: SULFAMETHOXAZOLE\TRIMETHOPRIM
  15. JANUVIA [Concomitant]
     Active Substance: SITAGLIPTIN PHOSPHATE
     Dates: end: 20170629
  16. SUREPOST [Concomitant]
     Active Substance: REPAGLINIDE
     Dates: end: 20170314
  17. ZETIA [Concomitant]
     Active Substance: EZETIMIBE
     Dates: end: 20170622
  18. CRESTOR [Concomitant]
     Active Substance: ROSUVASTATIN CALCIUM
     Dates: end: 20170620
  19. LOTRIGA [Concomitant]
     Active Substance: OMEGA-3-ACID ETHYL ESTERS
     Dates: end: 20170622

REACTIONS (4)
  - Cystitis viral [Recovered/Resolved]
  - Vomiting [Recovered/Resolved]
  - Retinal exudates [Not Recovered/Not Resolved]
  - Anaemia [Not Recovered/Not Resolved]

NARRATIVE: CASE EVENT DATE: 20170119
